FAERS Safety Report 7010802-3 (Version None)
Quarter: 2010Q3

REPORT INFORMATION
  Report Type: 
  Country: None (occurrence: None)
  Receive Date: 20100923
  Receipt Date: 20100923
  Transmission Date: 20110219
  Serious: Yes (Other)
  Sender: FDA-Public Use
  Company Number: None

PATIENT
  Age: 91 Year
  Sex: Female
  Weight: 56.6996 kg

DRUGS (4)
  1. FLUCONAZOLE [Suspect]
     Indication: ANTIFUNGAL TREATMENT
     Dosage: ONE PILL ONCE PO
     Route: 048
     Dates: start: 20100917, end: 20100917
  2. FLUCONAZOLE [Suspect]
     Indication: CANDIDIASIS
     Dosage: ONE PILL ONCE PO
     Route: 048
     Dates: start: 20100917, end: 20100917
  3. CICLOPIROX [Suspect]
     Indication: ANTIFUNGAL TREATMENT
     Dosage: APPLY ON SKIN SPOT 2 X DAY TOP
     Route: 061
     Dates: start: 20100917, end: 20100920
  4. CICLOPIROX [Suspect]
     Indication: CANDIDIASIS
     Dosage: APPLY ON SKIN SPOT 2 X DAY TOP
     Route: 061
     Dates: start: 20100917, end: 20100920

REACTIONS (4)
  - ASTHENIA [None]
  - DYSPNOEA [None]
  - FEELING ABNORMAL [None]
  - HALLUCINATION [None]
